FAERS Safety Report 15861854 (Version 1)
Quarter: 2019Q1

REPORT INFORMATION
  Report Type: Spontaneous
  Country: US (occurrence: US)
  Receive Date: 20190124
  Receipt Date: 20190124
  Transmission Date: 20190417
  Serious: No
  Sender: FDA-Public Use
  Company Number: US-PFIZER INC-2019021627

PATIENT
  Age: 57 Year
  Sex: Female

DRUGS (2)
  1. MORPHINE SULFATE. [Suspect]
     Active Substance: MORPHINE SULFATE
     Dosage: UNK
  2. ANCEF [Suspect]
     Active Substance: CEFAZOLIN SODIUM
     Dosage: UNK

REACTIONS (5)
  - Drug hypersensitivity [Unknown]
  - Urticaria [Unknown]
  - Pharyngeal oedema [Unknown]
  - Pruritus [Unknown]
  - Skin disorder [Unknown]
